FAERS Safety Report 5794342-5 (Version None)
Quarter: 2008Q2

REPORT INFORMATION
  Report Type: 
  Country: None (occurrence: None)
  Receive Date: 20080625
  Receipt Date: 20080610
  Transmission Date: 20081010
  Serious: Yes (Hospitalization)
  Sender: FDA-Public Use
  Company Number: 2008AL006706

PATIENT
  Age: 99 Year
  Sex: Female
  Weight: 63.5036 kg

DRUGS (10)
  1. DIGOXIN [Suspect]
     Indication: ARRHYTHMIA
     Dosage: 0.125MG DAILY PO
     Route: 048
     Dates: start: 20080304
  2. CARDIZEM [Concomitant]
  3. FUROSEMIDE [Concomitant]
  4. SYNTHROID [Concomitant]
  5. TYLENOL [Concomitant]
  6. HYDROCHLOROTHIAZIDE [Concomitant]
  7. FEXOFENADINE [Concomitant]
  8. POTASSIUM CHLORIDE [Concomitant]
  9. METOLAZONE [Concomitant]
  10. NEXIUM [Concomitant]

REACTIONS (4)
  - ANOREXIA [None]
  - CARDIOACTIVE DRUG LEVEL INCREASED [None]
  - FLUID RETENTION [None]
  - NAUSEA [None]
